FAERS Safety Report 9741430 (Version 2)
Quarter: 2013Q4

REPORT INFORMATION
  Report Type: Spontaneous
  Country: CA (occurrence: CA)
  Receive Date: 20131209
  Receipt Date: 20131231
  Transmission Date: 20140711
  Serious: Yes (Life-Threatening)
  Sender: FDA-Public Use
  Company Number: PHHY2013CA143287

PATIENT
  Age: 63 Year
  Sex: Male

DRUGS (4)
  1. TASIGNA [Suspect]
     Indication: CHRONIC MYELOID LEUKAEMIA
     Dosage: 400 MG, BID
     Route: 048
     Dates: start: 200807
  2. CRESTOR [Concomitant]
  3. METOPROLOL [Concomitant]
  4. KEPPRA [Concomitant]

REACTIONS (1)
  - Myocardial infarction [Recovered/Resolved]
